FAERS Safety Report 20245713 (Version 1)
Quarter: 2021Q4

REPORT INFORMATION
  Report Type: Other
  Country: US (occurrence: None)
  Receive Date: 20211229
  Receipt Date: 20211229
  Transmission Date: 20220303
  Serious: Yes (Other)
  Sender: FDA-Public Use
  Company Number: US-ROCHE-2984460

PATIENT
  Age: 65 Year
  Sex: Female

DRUGS (1)
  1. ALTEPLASE [Suspect]
     Active Substance: ALTEPLASE
     Indication: Pulmonary embolism
     Route: 042

REACTIONS (6)
  - Choroidal haemorrhage [Unknown]
  - Choroidal detachment [Unknown]
  - Retinal detachment [Unknown]
  - Blindness unilateral [Unknown]
  - Cataract nuclear [Unknown]
  - Intraocular pressure increased [Unknown]
